FAERS Safety Report 8192086-6 (Version None)
Quarter: 2012Q1

REPORT INFORMATION
  Report Type: 
  Country: None (occurrence: None)
  Receive Date: 20120307
  Receipt Date: 20120302
  Transmission Date: 20120608
  Serious: Yes (Hospitalization)
  Sender: FDA-Public Use
  Company Number: BR-PFIZER INC-2012056701

PATIENT
  Age: 13 Year
  Sex: Male

DRUGS (2)
  1. NEXIUM [Concomitant]
     Indication: GASTROOESOPHAGEAL REFLUX DISEASE
     Dosage: 20 MG (ONE CAPSULE) DAILY
     Dates: start: 20100101
  2. GENOTROPIN [Suspect]
     Indication: BLOOD GROWTH HORMONE
     Dosage: UNK
     Route: 058
     Dates: start: 20120101

REACTIONS (2)
  - APPENDICITIS [None]
  - INJECTION SITE HAEMORRHAGE [None]
